FAERS Safety Report 9681345 (Version 1)
Quarter: 2013Q4

REPORT INFORMATION
  Report Type: Spontaneous
  Country: US (occurrence: None)
  Receive Date: 20131108
  Receipt Date: 20131108
  Transmission Date: 20140711
  Serious: Yes (Other)
  Sender: FDA-Public Use
  Company Number: None

PATIENT
  Age: 60 Year
  Sex: Male

DRUGS (1)
  1. PRED FORTE [Suspect]
     Indication: IRITIS
     Dosage: ONGOIG TREATMENT SINCE 10/28 1 DROP INTO THE EYE

REACTIONS (1)
  - Blood glucose increased [None]
